FAERS Safety Report 21073393 (Version 1)
Quarter: 2022Q3

REPORT INFORMATION
  Report Type: Spontaneous
  Country: US (occurrence: None)
  Receive Date: 20220713
  Receipt Date: 20220713
  Transmission Date: 20221027
  Serious: No
  Sender: FDA-Public Use
  Company Number: 2022A220584

PATIENT
  Sex: Female
  Weight: 113.4 kg

DRUGS (2)
  1. BYDUREON BCISE [Suspect]
     Active Substance: EXENATIDE
     Indication: Type 2 diabetes mellitus
     Route: 058
     Dates: start: 20220514
  2. RYBELSUS [Concomitant]
     Active Substance: SEMAGLUTIDE
     Route: 065

REACTIONS (9)
  - Injection site mass [Unknown]
  - Rash [Unknown]
  - Contusion [Unknown]
  - Balance disorder [Unknown]
  - Injection site reaction [Unknown]
  - Pruritus [Unknown]
  - Nausea [Unknown]
  - Abdominal discomfort [Unknown]
  - Blood glucose decreased [Not Recovered/Not Resolved]

NARRATIVE: CASE EVENT DATE: 20220101
